FAERS Safety Report 18007415 (Version 1)
Quarter: 2020Q3

REPORT INFORMATION
  Report Type: Spontaneous
  Country: CA (occurrence: CA)
  Receive Date: 20200710
  Receipt Date: 20200710
  Transmission Date: 20201103
  Serious: Yes (Other)
  Sender: FDA-Public Use
  Company Number: CA-PFIZER INC-2020262549

PATIENT
  Age: 5 Year
  Sex: Female

DRUGS (1)
  1. CHILDRENS ADVIL [Suspect]
     Active Substance: IBUPROFEN
     Indication: DENTAL DISCOMFORT
     Dosage: 10 ML, 1 EVERY 8 HOURS
     Route: 048

REACTIONS (2)
  - Pain in extremity [Recovered/Resolved]
  - Toe walking [Recovered/Resolved]
